FAERS Safety Report 4357155-7 (Version None)
Quarter: 2004Q2

REPORT INFORMATION
  Report Type: 
  Country: None (occurrence: None)
  Receive Date: 20040511
  Receipt Date: 20040505
  Transmission Date: 20050107
  Serious: Yes (Hospitalization)
  Sender: FDA-Public Use
  Company Number: US-SHR-04-021316

PATIENT
  Age: 47 Year
  Sex: Male
  Weight: 102 kg

DRUGS (5)
  1. BETASERON [Suspect]
     Indication: MULTIPLE SCLEROSIS
     Dosage: 8 MIU, EVERY 2D HS, SUBCUTANEOUS
     Route: 058
     Dates: start: 20020201
  2. BACLOFEN [Concomitant]
  3. ZETIA [Concomitant]
  4. FLOMAX ^BOEHRINGER INGELHEIM^ (TAMSULOSIN HYDROCHLORIDE) [Concomitant]
  5. AVAPRO [Concomitant]

REACTIONS (1)
  - BENIGN NEOPLASM OF SPINAL CORD [None]
